FAERS Safety Report 11999449 (Version 1)
Quarter: 2016Q1

REPORT INFORMATION
  Report Type: Spontaneous
  Country: US (occurrence: None)
  Receive Date: 20160203
  Receipt Date: 20160203
  Transmission Date: 20160526
  Serious: No
  Sender: FDA-Public Use
  Company Number: None

PATIENT

DRUGS (2)
  1. DIGOXIN DIGOXIN 0.25MG [Suspect]
     Active Substance: DIGOXIN
  2. DIGOXIN DIGOXIN 0.125MG [Suspect]
     Active Substance: DIGOXIN

REACTIONS (3)
  - Incorrect dose administered [None]
  - Drug dispensing error [None]
  - Transcription medication error [None]
